FAERS Safety Report 12343217 (Version 1)
Quarter: 2016Q2

REPORT INFORMATION
  Report Type: Spontaneous
  Country: ES (occurrence: ES)
  Receive Date: 20160506
  Receipt Date: 20160506
  Transmission Date: 20160815
  Serious: Yes (Death, Other)
  Sender: FDA-Public Use
  Company Number: ES-TEVA-657246ISR

PATIENT
  Age: 48 Year
  Sex: Female

DRUGS (1)
  1. RIBAVIRIN. [Suspect]
     Active Substance: RIBAVIRIN
     Indication: RESPIRATORY SYNCYTIAL VIRUS INFECTION
     Dosage: 20 MG/KG DAILY; 20 MG/KG/DAY IN 3 DIVIDED DOSES
     Route: 048

REACTIONS (4)
  - Respiratory failure [Unknown]
  - Cough [Unknown]
  - Death [Fatal]
  - Wheezing [Unknown]
